FAERS Safety Report 9279719 (Version 2)
Quarter: 2013Q3

REPORT INFORMATION
  Report Type: Spontaneous
  Country: US (occurrence: US)
  Receive Date: 20130509
  Receipt Date: 20130712
  Transmission Date: 20140515
  Serious: No
  Sender: FDA-Public Use
  Company Number: US-BIOGENIDEC-2013BI040503

PATIENT
  Age: 32 Year
  Sex: Male

DRUGS (1)
  1. TYSABRI [Suspect]
     Indication: MULTIPLE SCLEROSIS
     Route: 042
     Dates: start: 20120410, end: 20130206

REACTIONS (11)
  - Tremor [Not Recovered/Not Resolved]
  - Blindness [Unknown]
  - Abasia [Unknown]
  - Migraine [Recovered/Resolved]
  - Cognitive disorder [Not Recovered/Not Resolved]
  - Speech disorder [Not Recovered/Not Resolved]
  - Sputum retention [Recovered/Resolved]
  - Choking [Recovered/Resolved]
  - White blood cell count decreased [Unknown]
  - Dysphagia [Not Recovered/Not Resolved]
  - Urinary tract infection [Unknown]
